FAERS Safety Report 5501542-8 (Version None)
Quarter: 2007Q4

REPORT INFORMATION
  Report Type: 
  Country: None (occurrence: None)
  Receive Date: 20071022
  Receipt Date: 20070710
  Transmission Date: 20080405
  Serious: No
  Sender: FDA-Public Use
  Company Number: SPV1-2007-03582

PATIENT
  Age: 8 Year
  Sex: Male

DRUGS (4)
  1. VYVANSE [Suspect]
     Dosage: 2 MG, 1X/DAY: QD, ORAL; 50 MG, 1X/DAY;QD, ORAL
     Route: 048
     Dates: start: 20070629, end: 20070629
  2. ADDERALL 10 [Concomitant]
  3. PROZAC [Concomitant]
  4. TRAZODONE HCL [Concomitant]

REACTIONS (4)
  - CONFUSIONAL STATE [None]
  - FALL [None]
  - FEELING ABNORMAL [None]
  - HEART RATE INCREASED [None]
